FAERS Safety Report 8850091 (Version 1)
Quarter: 2012Q4

REPORT INFORMATION
  Report Type: 
  Country: US (occurrence: US)
  Receive Date: 20121019
  Receipt Date: 20121019
  Transmission Date: 20130627
  Serious: No
  Sender: FDA-Public Use
  Company Number: US-PFIZER INC-2012259728

PATIENT
  Age: 33 Year
  Sex: Male
  Weight: 102 kg

DRUGS (6)
  1. LYRICA [Suspect]
     Indication: FIBROMYALGIA
     Dosage: UNK, daily
     Route: 048
     Dates: start: 20120924
  2. LYRICA [Suspect]
     Dosage: 2 DF, daily
     Route: 048
  3. LYRICA [Suspect]
     Dosage: 3 DF, daily
     Route: 048
  4. LYRICA [Suspect]
     Dosage: 2 DF, 2x/day (two capsules in the morning and two in the evening)
     Route: 048
  5. LYRICA [Suspect]
     Dosage: UNK
     Route: 048
  6. TYLENOL [Suspect]
     Indication: MUSCULOSKELETAL PAIN
     Dosage: UNK, as needed

REACTIONS (1)
  - Musculoskeletal pain [Unknown]
